FAERS Safety Report 7764799-9 (Version None)
Quarter: 2011Q3

REPORT INFORMATION
  Report Type: 
  Country: None (occurrence: None)
  Receive Date: 20110920
  Receipt Date: 20110920
  Transmission Date: 20111222
  Serious: Yes (Hospitalization)
  Sender: FDA-Public Use
  Company Number: None

PATIENT
  Age: 69 Year
  Sex: Male
  Weight: 56.3 kg

DRUGS (1)
  1. PHENYTOIN [Suspect]
     Indication: CONVULSION
     Dosage: 400 MG
     Route: 048
     Dates: start: 19980916, end: 20110625

REACTIONS (6)
  - HYPOPHAGIA [None]
  - FLUID INTAKE REDUCED [None]
  - FALL [None]
  - TOXICITY TO VARIOUS AGENTS [None]
  - DIZZINESS [None]
  - PRESYNCOPE [None]
